FAERS Safety Report 11934987 (Version 1)
Quarter: 2016Q1

REPORT INFORMATION
  Report Type: Spontaneous
  Country: US (occurrence: None)
  Receive Date: 20160120
  Receipt Date: 20160120
  Transmission Date: 20160526
  Serious: Yes (Life-Threatening, Hospitalization)
  Sender: FDA-Public Use
  Company Number: None

PATIENT
  Age: 26 Year
  Sex: Female
  Weight: 65.77 kg

DRUGS (6)
  1. PRENATAL VITAMIN [Concomitant]
     Active Substance: VITAMINS
  2. IRON [Concomitant]
     Active Substance: IRON
  3. COLACE [Concomitant]
     Active Substance: DOCUSATE SODIUM
  4. MIRALAX [Concomitant]
     Active Substance: POLYETHYLENE GLYCOL 3350
  5. MIRENA [Suspect]
     Active Substance: LEVONORGESTREL
  6. SYNTHROID [Concomitant]
     Active Substance: LEVOTHYROXINE SODIUM

REACTIONS (4)
  - Complication of device removal [None]
  - Premature separation of placenta [None]
  - Caesarean section [None]
  - Vaginal haemorrhage [None]

NARRATIVE: CASE EVENT DATE: 20151228
